FAERS Safety Report 10601098 (Version 3)
Quarter: 2015Q1

REPORT INFORMATION
  Report Type: Spontaneous
  Country: US (occurrence: US)
  Receive Date: 20141124
  Receipt Date: 20150309
  Transmission Date: 20150720
  Serious: No
  Sender: FDA-Public Use
  Company Number: US-JNJFOC-20141019779

PATIENT
  Age: 61 Year
  Sex: Female

DRUGS (3)
  1. INVEGA SUSTENNA [Suspect]
     Active Substance: PALIPERIDONE PALMITATE
     Indication: BIPOLAR DISORDER
     Route: 030
     Dates: start: 20141111
  2. INVEGA [Suspect]
     Active Substance: PALIPERIDONE
     Indication: BIPOLAR DISORDER
     Route: 048
  3. INVEGA SUSTENNA [Suspect]
     Active Substance: PALIPERIDONE PALMITATE
     Indication: BIPOLAR DISORDER
     Route: 030
     Dates: start: 20120413, end: 20141014

REACTIONS (7)
  - Sexual dysfunction [Not Recovered/Not Resolved]
  - Product use issue [Unknown]
  - Wrong technique in drug usage process [Unknown]
  - Tremor [Recovering/Resolving]
  - Drug dose omission [Unknown]
  - Hallucination, auditory [Not Recovered/Not Resolved]
  - Muscle twitching [Recovering/Resolving]

NARRATIVE: CASE EVENT DATE: 20121129
